FAERS Safety Report 25842461 (Version 1)
Quarter: 2025Q3

REPORT INFORMATION
  Report Type: Spontaneous
  Country: US (occurrence: US)
  Receive Date: 20250924
  Receipt Date: 20250924
  Transmission Date: 20251021
  Serious: Yes (Other)
  Sender: SANOFI AVENTIS
  Company Number: US-SA-2025SA285250

PATIENT
  Sex: Female
  Weight: 131.18 kg

DRUGS (2)
  1. DUPIXENT [Suspect]
     Active Substance: DUPILUMAB
     Dosage: 300 MG, QOW
     Route: 058
  2. TYLENOL ARTHRITIS PAIN [Concomitant]
     Active Substance: ACETAMINOPHEN

REACTIONS (6)
  - Facial paralysis [Unknown]
  - Diarrhoea [Unknown]
  - Oral discomfort [Unknown]
  - Joint swelling [Unknown]
  - Lip swelling [Unknown]
  - Arthralgia [Unknown]
